FAERS Safety Report 7508053-9 (Version None)
Quarter: 2011Q2

REPORT INFORMATION
  Report Type: 
  Country: None (occurrence: None)
  Receive Date: 20110527
  Receipt Date: 20110513
  Transmission Date: 20111010
  Serious: Yes (Hospitalization)
  Sender: FDA-Public Use
  Company Number: US-BAYER-2011-045394

PATIENT
  Age: 25 Year
  Sex: Female
  Weight: 56.689 kg

DRUGS (3)
  1. LAMICTAL [Concomitant]
  2. YAZ [Suspect]
     Indication: ORAL CONTRACEPTION
  3. PANTOPRAZOLE [Concomitant]

REACTIONS (5)
  - VOMITING [None]
  - PANCREATITIS [None]
  - ABDOMINAL PAIN UPPER [None]
  - BACK PAIN [None]
  - PERIPANCREATIC FLUID COLLECTION [None]
